FAERS Safety Report 10008874 (Version 1)
Quarter: 2014Q1

REPORT INFORMATION
  Report Type: Spontaneous
  Country: US (occurrence: US)
  Receive Date: 20140313
  Receipt Date: 20140313
  Transmission Date: 20141002
  Serious: Yes (Other)
  Sender: FDA-Public Use
  Company Number: US-INCYTE CORPORATION-2012IN000858

PATIENT
  Age: 81 Year
  Sex: Female

DRUGS (9)
  1. JAKAFI [Suspect]
     Indication: MYELODYSPLASTIC SYNDROME
     Dosage: 20 MG/KG, BID
     Route: 048
     Dates: start: 201204
  2. SYNTHROID [Concomitant]
  3. PRAVACOL [Concomitant]
  4. BUSPAR [Concomitant]
  5. CELEXA [Concomitant]
  6. IMDUR [Concomitant]
  7. MULTIVITAMIN [Concomitant]
  8. EYE-HEALTH VITAMIN [Concomitant]
  9. VITAMIN D [Concomitant]

REACTIONS (1)
  - Haemoglobin decreased [Unknown]
